FAERS Safety Report 20309329 (Version 1)
Quarter: 2022Q1

REPORT INFORMATION
  Report Type: Spontaneous
  Country: US (occurrence: None)
  Receive Date: 20220107
  Receipt Date: 20220107
  Transmission Date: 20220423
  Serious: Yes (Hospitalization)
  Sender: FDA-Public Use
  Company Number: None

PATIENT
  Sex: Female

DRUGS (6)
  1. NORDITROPIN [Suspect]
     Active Substance: SOMATROPIN
     Indication: Hypopituitarism
     Dosage: 15 MG/1.5ML  INJECT 2 MG UNDER THE SKIN (SUBCUTANEOUS INJECTION) ONCE A DAY
     Route: 058
  2. DULOXETINE HYDROCHLORIDE [Concomitant]
     Active Substance: DULOXETINE HYDROCHLORIDE
  3. HYDROCORT TAB [Concomitant]
  4. SYNTHROID TAB [Concomitant]
  5. ZAFEMY [Concomitant]
  6. PRASTERONE [Suspect]
     Active Substance: PRASTERONE

REACTIONS (1)
  - Therapy interrupted [None]
